FAERS Safety Report 15090252 (Version 1)
Quarter: 2018Q2

REPORT INFORMATION
  Report Type: Spontaneous
  Country: US (occurrence: US)
  Receive Date: 20180608
  Receipt Date: 20180608
  Transmission Date: 20180711
  Serious: Yes (Other)
  Sender: FDA-Public Use
  Company Number: None

PATIENT
  Age: 26 Year
  Sex: Female

DRUGS (2)
  1. OXCARBAZEPINE 600 MG GLENMARK [Suspect]
     Active Substance: OXCARBAZEPINE
     Indication: BIPOLAR DISORDER
     Dosage: PATIENT HAS BEEEN ER    ... OVER 6 YEARS
     Route: 048
  2. OXCARBAZEPINE 600 MG GLENMARK [Suspect]
     Active Substance: OXCARBAZEPINE
     Indication: BIPOLAR I DISORDER
     Dosage: PATIENT HAS BEEEN ER    ... OVER 6 YEARS
     Route: 048

REACTIONS (4)
  - Mood altered [None]
  - Urticaria [None]
  - Drug level fluctuating [None]
  - Product substitution issue [None]
